FAERS Safety Report 8454841-4 (Version None)
Quarter: 2012Q2

REPORT INFORMATION
  Report Type: 
  Country: None (occurrence: None)
  Receive Date: 20120621
  Receipt Date: 20120611
  Transmission Date: 20120825
  Serious: Yes (Hospitalization, Other)
  Sender: FDA-Public Use
  Company Number: FR-MPIJNJ-2012-01247

PATIENT

DRUGS (10)
  1. VELCADE [Suspect]
     Indication: MULTIPLE MYELOMA
     Dosage: 2 MG, UNK
     Route: 065
     Dates: start: 20110816, end: 20120216
  2. PREGABALIN [Concomitant]
     Indication: PERIPHERAL SENSORY NEUROPATHY
     Dosage: 7.5 MG, BID
     Route: 048
     Dates: start: 20111219
  3. GENTAMICIN SULFATE [Concomitant]
     Indication: INFECTION
     Dosage: 380 MG, UNK
     Route: 042
     Dates: start: 20120219
  4. DEXAMETHASONE [Suspect]
     Indication: MULTIPLE MYELOMA
     Dosage: 20 MG, UNK
     Route: 065
     Dates: start: 20110816, end: 20120216
  5. VANIDENE [Concomitant]
     Indication: INFECTION
     Dosage: 1000 MG, UNK
     Route: 042
     Dates: start: 20120219
  6. BACTRIM [Concomitant]
     Indication: INFECTION PROPHYLAXIS
     Dosage: UNK
     Dates: start: 20110816
  7. AMOXICILLIN [Concomitant]
     Indication: INFECTION
     Dosage: 1 G, UNK
     Route: 048
     Dates: start: 20120102
  8. TAZOBACTAM [Concomitant]
     Indication: INFECTION
     Dosage: 4 G, UNK
     Route: 042
     Dates: start: 20120219
  9. REVLIMID [Suspect]
     Indication: MULTIPLE MYELOMA
     Dosage: 25 MG, UNK
     Route: 065
     Dates: start: 20110816, end: 20120218
  10. NEFOPAM [Concomitant]
     Indication: INFECTION
     Dosage: 20 MG, UNK
     Route: 048
     Dates: start: 20120219

REACTIONS (4)
  - INFECTION [None]
  - THROMBOSIS [None]
  - PAIN [None]
  - FEELING ABNORMAL [None]
